FAERS Safety Report 5678924-7 (Version None)
Quarter: 2008Q1

REPORT INFORMATION
  Report Type: 
  Country: None (occurrence: None)
  Receive Date: 20080325
  Receipt Date: 20080317
  Transmission Date: 20080703
  Serious: Yes (Disabling)
  Sender: FDA-Public Use
  Company Number: PHHY2008GB02965

PATIENT
  Age: 12 Year
  Sex: Female
  Weight: 70 kg

DRUGS (4)
  1. TEGRETOL [Suspect]
     Indication: TEMPORAL LOBE EPILEPSY
     Dosage: 1 DF, QD
     Route: 048
     Dates: start: 20080221, end: 20080312
  2. TEGRETOL [Suspect]
     Dosage: 2 DF, QD
  3. TEGRETOL [Suspect]
     Dosage: 1 DF, QD
  4. TEGRETOL [Suspect]
     Dosage: 2 DF, QD

REACTIONS (3)
  - RASH GENERALISED [None]
  - REACTION TO COLOURING [None]
  - SKIN BURNING SENSATION [None]
